FAERS Safety Report 6624765-3 (Version None)
Quarter: 2010Q1

REPORT INFORMATION
  Report Type: 
  Country: None (occurrence: None)
  Receive Date: 20100310
  Receipt Date: 20100226
  Transmission Date: 20100710
  Serious: Yes (Other)
  Sender: FDA-Public Use
  Company Number: US-ELI_LILLY_AND_COMPANY-US201003000862

PATIENT
  Age: 40 Year
  Sex: Male

DRUGS (2)
  1. CYMBALTA [Suspect]
     Indication: DEPRESSION
     Dosage: 20 MG, DAILY (1/D)
     Dates: start: 20050101, end: 20050101
  2. CYMBALTA [Suspect]
     Dosage: 40 MG, UNK

REACTIONS (6)
  - ANGER [None]
  - CHROMATURIA [None]
  - CONTUSION [None]
  - DRUG INEFFECTIVE [None]
  - HOMICIDAL IDEATION [None]
  - SUICIDAL IDEATION [None]
